FAERS Safety Report 25031652 (Version 4)
Quarter: 2025Q1

REPORT INFORMATION
  Report Type: Spontaneous
  Country: US (occurrence: US)
  Receive Date: 20250303
  Receipt Date: 20250320
  Transmission Date: 20250408
  Serious: No
  Sender: PFIZER
  Company Number: US-PFIZER INC-PV202500024364

PATIENT
  Age: 66 Year
  Sex: Male
  Weight: 68.934 kg

DRUGS (3)
  1. INLYTA [Suspect]
     Active Substance: AXITINIB
     Indication: Renal cell carcinoma stage IV
     Dosage: UNK, 2X/DAY [AXITINIB PO (5-10 BID) D1-28 Q28D]
     Route: 048
  2. INLYTA [Suspect]
     Active Substance: AXITINIB
  3. KEYTRUDA [Suspect]
     Active Substance: PEMBROLIZUMAB
     Indication: Renal cell carcinoma stage IV

REACTIONS (15)
  - Diarrhoea [Recovering/Resolving]
  - Dizziness [Unknown]
  - Chest pain [Unknown]
  - Chest discomfort [Unknown]
  - Hypotension [Unknown]
  - Pyrexia [Recovering/Resolving]
  - Chills [Recovering/Resolving]
  - Respiratory tract congestion [Recovering/Resolving]
  - Viral infection [Unknown]
  - Fatigue [Unknown]
  - Nausea [Unknown]
  - Cough [Unknown]
  - Dyspnoea exertional [Unknown]
  - Dizziness postural [Unknown]
  - Iron deficiency anaemia [Unknown]

NARRATIVE: CASE EVENT DATE: 20250224
